FAERS Safety Report 4374246-5 (Version None)
Quarter: 2004Q2

REPORT INFORMATION
  Report Type: 
  Country: None (occurrence: None)
  Receive Date: 20040602
  Receipt Date: 20040225
  Transmission Date: 20050107
  Serious: No
  Sender: FDA-Public Use
  Company Number: 200411922BWH

PATIENT
  Age: 51 Year
  Sex: Male
  Weight: 93.441 kg

DRUGS (10)
  1. LEVITRA [Suspect]
     Indication: ERECTILE DYSFUNCTION
     Dosage: 10 MG, TOTAL DAILY, ORAL
     Route: 048
  2. PROVIGIL [Concomitant]
  3. BACLOFEN [Concomitant]
  4. AMBIEN [Concomitant]
  5. AVONEX [Concomitant]
  6. ATENOLOL [Concomitant]
  7. NEURONTIN [Concomitant]
  8. XANAX [Concomitant]
  9. TIZANIDINE HCL [Concomitant]
  10. KLONOPIN [Concomitant]

REACTIONS (1)
  - DIARRHOEA [None]
